FAERS Safety Report 6289090-1 (Version None)
Quarter: 2009Q3

REPORT INFORMATION
  Report Type: 
  Country: None (occurrence: None)
  Receive Date: 20090728
  Receipt Date: 20090716
  Transmission Date: 20100115
  Serious: Yes (Hospitalization)
  Sender: FDA-Public Use
  Company Number: 2005-136056-NL

PATIENT
  Age: 36 Year
  Sex: Female
  Weight: 72.6 kg

DRUGS (3)
  1. NUVARING [Suspect]
     Indication: ENDOMETRIOSIS
     Dosage: VAGINAL
     Route: 067
     Dates: start: 20040901, end: 20051118
  2. ADVAIR HFA [Concomitant]
  3. ALBUTEROL [Concomitant]

REACTIONS (11)
  - AMENORRHOEA [None]
  - DEEP VEIN THROMBOSIS [None]
  - HEART RATE INCREASED [None]
  - MUSCLE SPASMS [None]
  - PNEUMONIA [None]
  - PULMONARY EMBOLISM [None]
  - SENSATION OF HEAVINESS [None]
  - STRESS [None]
  - TACHYCARDIA [None]
  - WALKING AID USER [None]
  - WHEELCHAIR USER [None]
